FAERS Safety Report 11567591 (Version 1)
Quarter: 2015Q3

REPORT INFORMATION
  Report Type: Spontaneous
  Country: US (occurrence: US)
  Receive Date: 20150916
  Receipt Date: 20150916
  Transmission Date: 20151125
  Serious: No
  Sender: FDA-Public Use
  Company Number: US-ELI_LILLY_AND_COMPANY-US200907005863

PATIENT
  Sex: Female

DRUGS (8)
  1. FORTEO [Suspect]
     Active Substance: TERIPARATIDE
     Dosage: UNK, UNK
     Dates: start: 20090724
  2. TRAMADOL. [Concomitant]
     Active Substance: TRAMADOL
  3. CALCIUM [Concomitant]
     Active Substance: CALCIUM
  4. OCUVITE [Concomitant]
     Active Substance: VITAMINS
  5. SOMA [Concomitant]
     Active Substance: CARISOPRODOL
  6. AGGRENOX [Concomitant]
     Active Substance: ASPIRIN\DIPYRIDAMOLE
  7. MICARDIS [Concomitant]
     Active Substance: TELMISARTAN
  8. MULTIVITAMIN [Concomitant]
     Active Substance: VITAMINS

REACTIONS (1)
  - Dizziness [Recovered/Resolved]
